FAERS Safety Report 10480249 (Version 1)
Quarter: 2014Q3

REPORT INFORMATION
  Report Type: Spontaneous
  Country: GB (occurrence: GB)
  Receive Date: 20140929
  Receipt Date: 20140929
  Transmission Date: 20150326
  Serious: Yes (Congenital Anomaly)
  Sender: FDA-Public Use
  Company Number: GB-009507513-1409GBR009628

PATIENT
  Sex: Male

DRUGS (1)
  1. NEXPLANON [Suspect]
     Active Substance: ETONOGESTREL
     Indication: CONTRACEPTION
     Route: 064

REACTIONS (2)
  - Hypospadias [Not Recovered/Not Resolved]
  - Ankyloglossia congenital [Not Recovered/Not Resolved]

NARRATIVE: CASE EVENT DATE: 201304
